FAERS Safety Report 9060065 (Version 1)
Quarter: 2013Q1

REPORT INFORMATION
  Report Type: Spontaneous
  Country: US (occurrence: None)
  Receive Date: 20130207
  Receipt Date: 20130207
  Transmission Date: 20140127
  Serious: No
  Sender: FDA-Public Use
  Company Number: None

PATIENT
  Sex: 0

DRUGS (2)
  1. VECURONIUM BROMIDE [Suspect]
     Indication: ANAESTHESIA PROCEDURE
     Dates: start: 20130205, end: 20130205
  2. VECURONIUM BROMIDE [Suspect]
     Indication: NEUROMUSCULAR BLOCKING THERAPY
     Dates: start: 20130205, end: 20130205

REACTIONS (2)
  - Product quality issue [None]
  - Drug effect decreased [None]
